FAERS Safety Report 14690984 (Version 1)
Quarter: 2020Q3

REPORT INFORMATION
  Report Type: Spontaneous
  Country: US (occurrence: US)
  Receive Date: 20180328
  Receipt Date: 20180328
  Transmission Date: 20201104
  Serious: Yes (Other)
  Sender: FDA-Public Use
  Company Number: US-PFIZER INC-2018118694

PATIENT
  Age: 55 Year
  Sex: Female

DRUGS (2)
  1. METHOTREXATE SODIUM. [Suspect]
     Active Substance: METHOTREXATE SODIUM
     Indication: LUNG ADENOCARCINOMA STAGE IV
     Dosage: UNK
     Route: 037
     Dates: start: 201702, end: 201703
  2. ALECTINIB. [Suspect]
     Active Substance: ALECTINIB
     Indication: LUNG ADENOCARCINOMA STAGE IV
     Dosage: 450 MG, 2X/DAY
     Dates: start: 20160908, end: 201703

REACTIONS (4)
  - Hyponatraemia [Unknown]
  - Unresponsive to stimuli [Unknown]
  - Seizure [Unknown]
  - Hemiparesis [Unknown]
